FAERS Safety Report 4772455-4 (Version None)
Quarter: 2005Q3

REPORT INFORMATION
  Report Type: 
  Country: None (occurrence: None)
  Receive Date: 20050916
  Receipt Date: 20050916
  Transmission Date: 20060218
  Serious: Yes (Other)
  Sender: FDA-Public Use
  Company Number: None

PATIENT
  Age: 42 Year
  Sex: Female

DRUGS (1)
  1. OXALIPLATIN LIQUID FORMULATION [Suspect]
     Indication: COLON CANCER
     Dosage: Q 2 WK IV
     Route: 042

REACTIONS (5)
  - BRUXISM [None]
  - MOVEMENT DISORDER [None]
  - PAIN IN JAW [None]
  - PHARMACEUTICAL PRODUCT COMPLAINT [None]
  - TETANY [None]
